FAERS Safety Report 8513598-9 (Version None)
Quarter: 2012Q3

REPORT INFORMATION
  Report Type: 
  Country: None (occurrence: None)
  Receive Date: 20120717
  Receipt Date: 20120716
  Transmission Date: 20120928
  Serious: No
  Sender: FDA-Public Use
  Company Number: US-PFIZER INC-2012171081

PATIENT
  Sex: Female
  Weight: 64.853 kg

DRUGS (5)
  1. CHANTIX [Suspect]
     Indication: SMOKING CESSATION THERAPY
     Dosage: 0.5 MG, 1X/DAY
     Route: 048
     Dates: start: 20120401, end: 20120401
  2. CHANTIX [Suspect]
     Dosage: 1 MG, UNK
     Route: 048
     Dates: start: 20120401, end: 20120401
  3. XANAX [Concomitant]
     Indication: PANIC ATTACK
     Dosage: UNK
  4. XANAX [Concomitant]
     Indication: ANXIETY
  5. PAXIL [Concomitant]
     Dosage: UNK

REACTIONS (1)
  - NAUSEA [None]
